FAERS Safety Report 5535879-3 (Version None)
Quarter: 2007Q4

REPORT INFORMATION
  Report Type: 
  Country: None (occurrence: None)
  Receive Date: 20071206
  Receipt Date: 20070627
  Transmission Date: 20080405
  Serious: Yes (Other)
  Sender: FDA-Public Use
  Company Number: US-AMGEN-KDL226088

PATIENT
  Sex: Female

DRUGS (8)
  1. ENBREL [Suspect]
     Indication: RHEUMATOID ARTHRITIS
     Route: 058
     Dates: start: 20070301
  2. PREDNISONE TAB [Concomitant]
     Route: 048
  3. METHOTREXATE [Concomitant]
     Route: 048
  4. ALBUTEROL [Concomitant]
  5. SINGULAIR [Concomitant]
  6. FOLIC ACID [Concomitant]
  7. LORTAB [Concomitant]
  8. MUSCLE RELAXANTS [Concomitant]

REACTIONS (3)
  - LUNG NEOPLASM MALIGNANT [None]
  - RHONCHI [None]
  - WHEEZING [None]
